FAERS Safety Report 5081847-8 (Version None)
Quarter: 2006Q3

REPORT INFORMATION
  Report Type: 
  Country: None (occurrence: None)
  Receive Date: 20060816
  Receipt Date: 20060807
  Transmission Date: 20061208
  Serious: Yes (Disabling)
  Sender: FDA-Public Use
  Company Number: PHNU2006DE02733

PATIENT
  Sex: Male

DRUGS (1)
  1. LOCOL [Suspect]
     Dosage: 80 MG, QD
     Route: 048

REACTIONS (1)
  - MACULAR DEGENERATION [None]
